FAERS Safety Report 8649874 (Version 3)
Quarter: 2012Q4

REPORT INFORMATION
  Report Type: Report from Study
  Country: US (occurrence: US)
  Receive Date: 20120705
  Receipt Date: 20121121
  Transmission Date: 20130627
  Serious: Yes (Hospitalization)
  Sender: FDA-Public Use
  Company Number: US-CELGENEUS-163-21880-12063687

PATIENT
  Age: 72 Year
  Sex: Female
  Weight: 67.19 kg

DRUGS (15)
  1. REVLIMID [Suspect]
     Indication: MULTIPLE MYELOMA
     Dosage: 10 Milligram
     Route: 048
     Dates: start: 20100127, end: 20100714
  2. REVLIMID [Suspect]
     Dosage: 10 Milligram
     Route: 048
     Dates: start: 20110310, end: 20110531
  3. REVLIMID [Suspect]
     Dosage: 5 Milligram
     Route: 048
     Dates: start: 20110601
  4. ASPIRIN [Concomitant]
     Indication: ROUTINE HEALTH MAINTENANCE
     Dosage: 81 Milligram
     Route: 065
     Dates: start: 20110523
  5. GABAPENTIN [Concomitant]
     Indication: NEUROPATHY
     Dosage: 900 Milligram
     Route: 065
     Dates: start: 20120229
  6. IMURAN [Concomitant]
     Indication: SCLERODERMA
     Dosage: 50 Milligram
     Route: 065
     Dates: start: 20110425
  7. LASIX [Concomitant]
     Indication: ANKLE EDEMA
     Dosage: 10 Milligram
     Route: 065
     Dates: start: 20110425
  8. CALCIUM [Concomitant]
     Indication: ROUTINE HEALTH MAINTENANCE
     Dosage: 600 Milligram
     Route: 065
     Dates: start: 20091117
  9. VITAMIN D [Concomitant]
     Indication: ROUTINE HEALTH MAINTENANCE
     Dosage: 400 IU (International Unit)
     Route: 065
     Dates: start: 20091117
  10. LOPRESSOR [Concomitant]
     Indication: HYPERTENSION
     Dosage: 100 Milligram
     Route: 065
     Dates: start: 20100519
  11. OMEPRAZOLE [Concomitant]
     Indication: GERD
     Dosage: 80 Milligram
     Route: 065
     Dates: start: 20120328
  12. OXYCODONE [Concomitant]
     Indication: PAIN
     Dosage: 5 Milligram
     Route: 065
     Dates: start: 20120201
  13. OXYCONTIN [Concomitant]
     Indication: PAIN
     Dosage: 60 Milligram
     Route: 065
     Dates: start: 20120718
  14. SIMVASTATIN [Concomitant]
     Indication: HYPERLIPIDEMIA
     Dosage: 40 Milligram
     Route: 065
     Dates: start: 20120718
  15. ZOFRAN [Concomitant]
     Indication: NAUSEA
     Dosage: 24 Milligram
     Route: 065
     Dates: start: 20120531

REACTIONS (1)
  - Adenocarcinoma of colon [Recovered/Resolved]
